FAERS Safety Report 9201493 (Version 2)
Quarter: 2013Q2

REPORT INFORMATION
  Report Type: Spontaneous
  Country: US (occurrence: US)
  Receive Date: 20130401
  Receipt Date: 20130404
  Transmission Date: 20140414
  Serious: Yes (Other)
  Sender: FDA-Public Use
  Company Number: US-BAYER-2013-037926

PATIENT
  Sex: Female

DRUGS (1)
  1. DROSPIRENONE + ETHINYLESTRADIOL [Suspect]

REACTIONS (1)
  - Polycystic ovaries [None]
